FAERS Safety Report 7575360-3 (Version None)
Quarter: 2011Q2

REPORT INFORMATION
  Report Type: 
  Country: None (occurrence: None)
  Receive Date: 20110627
  Receipt Date: 20110119
  Transmission Date: 20111010
  Serious: Yes (Hospitalization, Other)
  Sender: FDA-Public Use
  Company Number: US-BAYER-201030247NA

PATIENT
  Age: 21 Year
  Sex: Female
  Weight: 86 kg

DRUGS (26)
  1. NORTRIPTYLINE HYDROCHLORIDE [Concomitant]
  2. SOMA [Concomitant]
     Indication: BACK PAIN
     Dosage: 350 MG 1/2 TAB. QHS
  3. ZYRTEC [Concomitant]
     Indication: URTICARIA
  4. EXCEDRIN (MIGRAINE) [Concomitant]
  5. NORTRIPTYLINE HYDROCHLORIDE [Concomitant]
     Dosage: 30 MG, QD
  6. YASMIN [Suspect]
     Indication: CONTRACEPTION
     Route: 048
     Dates: start: 20030101, end: 20080615
  7. YAZ [Suspect]
     Indication: CONTRACEPTION
     Route: 048
     Dates: start: 20040101, end: 20080615
  8. YASMIN [Suspect]
     Indication: PREMENSTRUAL SYNDROME
  9. PRILOSEC [Concomitant]
  10. YAZ [Suspect]
     Indication: ACNE
  11. YASMIN [Suspect]
     Indication: ACNE
  12. ZYRTEC [Concomitant]
     Indication: MULTIPLE ALLERGIES
  13. BENTYL [Concomitant]
  14. LORA TAB [Concomitant]
  15. DROSPIRENONE AND ETHINYL ESTRADIOL [Suspect]
     Indication: CONTRACEPTION
     Dates: start: 20080101
  16. NORTRIPTYLINE HYDROCHLORIDE [Concomitant]
     Indication: MIGRAINE
  17. YAZ [Suspect]
     Indication: PREMENSTRUAL SYNDROME
  18. DROSPIRENONE AND ETHINYL ESTRADIOL [Suspect]
     Indication: ACNE
  19. LORATADINE [Concomitant]
  20. CARISOPRODOL [Concomitant]
     Indication: MIGRAINE
  21. NSAID'S [Concomitant]
     Indication: BACK PAIN
  22. DROSPIRENONE AND ETHINYL ESTRADIOL [Suspect]
     Indication: PREMENSTRUAL SYNDROME
  23. SOMA [Concomitant]
     Indication: INSOMNIA
  24. TOPAMAX [Concomitant]
     Indication: MIGRAINE
  25. HYDROCODONE [Concomitant]
     Indication: PAIN
  26. RELPAX [Concomitant]

REACTIONS (3)
  - CHOLECYSTITIS [None]
  - BILE DUCT OBSTRUCTION [None]
  - CHOLELITHIASIS [None]
